FAERS Safety Report 8049740 (Version 3)
Quarter: 2014Q2

REPORT INFORMATION
  Report Type: Spontaneous
  Country: FR (occurrence: FR)
  Receive Date: 20110722
  Receipt Date: 20140630
  Transmission Date: 20141212
  Serious: Yes (Life-Threatening, Hospitalization)
  Sender: FDA-Public Use
  Company Number: FR-PFIZER INC-2011161624

PATIENT
  Age: 52 Year
  Sex: Female

DRUGS (3)
  1. ADVIL [Suspect]
     Indication: FEBRILE CONVULSION
     Dosage: UNK
     Route: 048
     Dates: start: 20110406, end: 20110407
  2. PARACETAMOL [Suspect]
     Dosage: 8G/24H
     Dates: start: 20110405
  3. NOCTAMID [Concomitant]
     Dosage: UNK

REACTIONS (5)
  - Overdose [Recovered/Resolved]
  - Pyelonephritis acute [Recovered/Resolved]
  - Condition aggravated [Recovered/Resolved]
  - Renal abscess [Recovered/Resolved]
  - Bacteraemia [Recovered/Resolved]
